FAERS Safety Report 14744803 (Version 1)
Quarter: 2018Q2

REPORT INFORMATION
  Report Type: Spontaneous
  Country: PL (occurrence: PL)
  Receive Date: 20180411
  Receipt Date: 20180411
  Transmission Date: 20180711
  Serious: Yes (Other)
  Sender: FDA-Public Use
  Company Number: PL-TEVA-2018-PL-880719

PATIENT
  Age: 76 Year
  Sex: Male
  Weight: 72 kg

DRUGS (3)
  1. CALCIUM FOLINATE [Suspect]
     Active Substance: LEUCOVORIN CALCIUM
     Indication: COLON CANCER
     Dosage: DOSE: 370, DOSE UNIT UNSPECIFIED
     Dates: start: 20170321, end: 20170420
  2. FOLIC ACID. [Suspect]
     Active Substance: FOLIC ACID
     Indication: COLON CANCER
     Dosage: DOSE: 157,25, DOSE UNIT UNSPECIFIED
     Dates: start: 20170321, end: 20170420
  3. 5-FLUOROURACIL [Suspect]
     Active Substance: FLUOROURACIL
     Indication: COLON CANCER
     Dosage: DOSE: 740,0 IV BOLUS AND 1110 IV DRIP; DOSE UNIT UNSPECIFIED
     Dates: start: 20170321, end: 20170420

REACTIONS (1)
  - Neutropenia [Unknown]

NARRATIVE: CASE EVENT DATE: 20170509
